FAERS Safety Report 7989646-1 (Version None)
Quarter: 2011Q4

REPORT INFORMATION
  Report Type: 
  Country: None (occurrence: None)
  Receive Date: 20111215
  Receipt Date: 20111129
  Transmission Date: 20120403
  Serious: Yes (Other)
  Sender: FDA-Public Use
  Company Number: 2011P1013428

PATIENT
  Age: 8 Year
  Sex: Male

DRUGS (2)
  1. OVIDE [Suspect]
     Indication: LICE INFESTATION
     Dosage: X1;TOP
     Route: 061
     Dates: start: 20111128, end: 20111128
  2. OVIDE [Suspect]
     Indication: ACARODERMATITIS
     Dosage: X1;TOP
     Route: 061
     Dates: start: 20111128, end: 20111128

REACTIONS (2)
  - BLISTER [None]
  - CHEMICAL INJURY [None]
